FAERS Safety Report 5818251-8 (Version None)
Quarter: 2008Q3

REPORT INFORMATION
  Report Type: 
  Country: None (occurrence: None)
  Receive Date: 20080722
  Receipt Date: 20080710
  Transmission Date: 20090109
  Serious: Yes (Hospitalization, Other)
  Sender: FDA-Public Use
  Company Number: FR-PFIZER INC-2008045231

PATIENT
  Age: 62 Year
  Sex: Female
  Weight: 175 kg

DRUGS (3)
  1. ZYVOXID [Suspect]
     Indication: INFECTION
     Route: 042
     Dates: start: 20080430, end: 20080513
  2. FLAGYL [Suspect]
     Indication: INFECTION
     Route: 048
     Dates: start: 20080430, end: 20080513
  3. CIPROFLOXACIN [Suspect]
     Indication: INFECTION
     Route: 042
     Dates: start: 20080430, end: 20080513

REACTIONS (3)
  - ANAEMIA [None]
  - HAEMATOCRIT DECREASED [None]
  - THROMBOCYTOPENIA [None]
